FAERS Safety Report 9789592 (Version 2)
Quarter: 2014Q1

REPORT INFORMATION
  Report Type: Spontaneous
  Country: US (occurrence: US)
  Receive Date: 20131231
  Receipt Date: 20140206
  Transmission Date: 20141002
  Serious: Yes (Hospitalization)
  Sender: FDA-Public Use
  Company Number: US-ACTELION-A-US2013-92873

PATIENT
  Age: 72 Year
  Sex: Female

DRUGS (3)
  1. OPSUMIT [Suspect]
     Indication: PULMONARY ARTERIAL HYPERTENSION
     Dosage: 10 MG, QD
     Route: 048
     Dates: start: 20131204
  2. VELETRI [Suspect]
     Indication: PULMONARY ARTERIAL HYPERTENSION
     Dosage: 63 NG/KG, PER MIN
     Route: 042
     Dates: start: 20120803
  3. XARELTO [Concomitant]

REACTIONS (5)
  - Hepatic haemorrhage [Unknown]
  - Pancreatic cyst [Unknown]
  - Gallbladder disorder [Unknown]
  - Abdominal pain upper [Unknown]
  - Pulmonary arterial hypertension [Unknown]
